FAERS Safety Report 7229370-6 (Version None)
Quarter: 2011Q1

REPORT INFORMATION
  Report Type: 
  Country: None (occurrence: None)
  Receive Date: 20110117
  Receipt Date: 20110113
  Transmission Date: 20110831
  Serious: Yes (Other)
  Sender: FDA-Public Use
  Company Number: A0892071A

PATIENT
  Age: 57 Year
  Sex: Male

DRUGS (1)
  1. VOTRIENT [Suspect]
     Dosage: 800MG PER DAY
     Route: 048
     Dates: start: 20101014

REACTIONS (5)
  - HYPERTENSION [None]
  - UPPER LIMB FRACTURE [None]
  - NAUSEA [None]
  - DIARRHOEA [None]
  - HAIR COLOUR CHANGES [None]
